FAERS Safety Report 11624287 (Version 1)
Quarter: 2015Q4

REPORT INFORMATION
  Report Type: Spontaneous
  Country: US (occurrence: US)
  Receive Date: 20151013
  Receipt Date: 20151013
  Transmission Date: 20160304
  Serious: Yes (Death)
  Sender: FDA-Public Use
  Company Number: US-FRESENIUS KABI-FK201504860

PATIENT
  Age: 21 Year
  Sex: Female

DRUGS (2)
  1. BENADRYL [Concomitant]
     Active Substance: DIPHENHYDRAMINE HYDROCHLORIDE
     Indication: PRURITUS
     Route: 042
  2. MORPHINE SULFATE INJECTION [Suspect]
     Active Substance: MORPHINE SULFATE
     Indication: POSTOPERATIVE ANALGESIA
     Route: 065

REACTIONS (4)
  - Device computer issue [Fatal]
  - Toxicity to various agents [Fatal]
  - Pruritus [Unknown]
  - Accidental overdose [Fatal]
